FAERS Safety Report 13101361 (Version 1)
Quarter: 2017Q1

REPORT INFORMATION
  Report Type: Spontaneous
  Country: US (occurrence: US)
  Receive Date: 20170110
  Receipt Date: 20170110
  Transmission Date: 20170428
  Serious: Yes (Other)
  Sender: FDA-Public Use
  Company Number: None

PATIENT
  Age: 64 Year
  Sex: Female
  Weight: 118.04 kg

DRUGS (13)
  1. GARLIC. [Concomitant]
     Active Substance: GARLIC
  2. SUPER B-COMPLEX [Concomitant]
  3. METOPROLOL TARTRATE. [Suspect]
     Active Substance: METOPROLOL TARTRATE
     Indication: HYPERTENSION
     Dosage: 2 PILLS TWICE DAILY BY MOUTH
     Route: 048
     Dates: start: 20140808, end: 20161213
  4. WOMANS MULTI VITAMIN [Concomitant]
  5. MELATONIN [Concomitant]
     Active Substance: MELATONIN
  6. FISH OIL [Concomitant]
     Active Substance: FISH OIL
  7. DILTIAZEM CD [Concomitant]
     Active Substance: DILTIAZEM
  8. C-1000 [Concomitant]
  9. VITAMIN D [Concomitant]
     Active Substance: CHOLECALCIFEROL
  10. METOPROLOL TARTRATE. [Suspect]
     Active Substance: METOPROLOL TARTRATE
     Indication: CARDIAC DISORDER
     Dosage: 2 PILLS TWICE DAILY BY MOUTH
     Route: 048
     Dates: start: 20140808, end: 20161213
  11. LOSARTAN POTASSIUM. [Concomitant]
     Active Substance: LOSARTAN POTASSIUM
  12. COUMADIN [Concomitant]
     Active Substance: WARFARIN SODIUM
  13. ASPIRIN. [Concomitant]
     Active Substance: ASPIRIN

REACTIONS (4)
  - Rhinorrhoea [None]
  - Insomnia [None]
  - Pulmonary congestion [None]
  - Peripheral coldness [None]

NARRATIVE: CASE EVENT DATE: 20140808
